FAERS Safety Report 15842439 (Version 1)
Quarter: 2018Q4

REPORT INFORMATION
  Report Type: Spontaneous
  Country: US (occurrence: US)
  Receive Date: 20181226
  Receipt Date: 20181226
  Transmission Date: 20190205
  Serious: Yes (Disabling, Other)
  Sender: FDA-Public Use
  Company Number: None

PATIENT
  Age: 57 Year
  Sex: Female
  Weight: 58.97 kg

DRUGS (5)
  1. LIQUID VITAMIN D3 WITH K2 [Concomitant]
  2. PREMIUM CRACKED CELL CHLORELLA [Concomitant]
  3. MULTIHANCE [Suspect]
     Active Substance: GADOBENATE DIMEGLUMINE
  4. ULTRACLEAR [Concomitant]
  5. GADAVIST [Suspect]
     Active Substance: GADOBUTROL

REACTIONS (6)
  - Gadolinium deposition disease [None]
  - Urinary tract infection [None]
  - Mean cell haemoglobin increased [None]
  - Dry eye [None]
  - Contrast media toxicity [None]
  - Nephritis [None]

NARRATIVE: CASE EVENT DATE: 20180308
